FAERS Safety Report 6537428-X (Version None)
Quarter: 2009Q4

REPORT INFORMATION
  Report Type: 
  Country: None (occurrence: None)
  Receive Date: 20091229
  Receipt Date: 20091111
  Transmission Date: 20100525
  Serious: No
  Sender: FDA-Public Use
  Company Number: 1000010035

PATIENT
  Age: 72 Year
  Sex: Male

DRUGS (8)
  1. BYSTOLIC [Suspect]
     Indication: HYPERTENSION
     Dosage: 10 MG (10 MG, 1 IN 1 D), ORAL
     Route: 048
     Dates: start: 20091110
  2. LISINOPRIL AND HYDROCHLOROTHIAZIDE [Concomitant]
  3. AMLODIPINE [Concomitant]
  4. CHLORPHENIRAMINE MALEATE [Concomitant]
  5. FLONASE [Concomitant]
  6. NORCO [Concomitant]
  7. ZOCOR [Concomitant]
  8. TRANXENE [Concomitant]

REACTIONS (1)
  - HEART RATE DECREASED [None]
